FAERS Safety Report 16152493 (Version 4)
Quarter: 2019Q2

REPORT INFORMATION
  Report Type: Spontaneous
  Country: US (occurrence: US)
  Receive Date: 20190403
  Receipt Date: 20190530
  Transmission Date: 20190711
  Serious: No
  Sender: FDA-Public Use
  Company Number: US-SA-2019SA086849

PATIENT
  Age: 68 Year
  Sex: Male
  Weight: 77.1 kg

DRUGS (17)
  1. PRALUENT [Suspect]
     Active Substance: ALIROCUMAB
     Indication: BLOOD CHOLESTEROL
  2. MAGNESIUM [Concomitant]
     Active Substance: MAGNESIUM
  3. PROBIOTIC [BIFIDOBACTERIUM BIFIDUM;BIFIDOBACTERIUM LACTIS;BIFIDOBACTER [Concomitant]
  4. MITIGARE [Concomitant]
     Active Substance: COLCHICINE
  5. ISOSORBIDE MONONITRATE. [Concomitant]
     Active Substance: ISOSORBIDE MONONITRATE
  6. TAMSULOSIN [Concomitant]
     Active Substance: TAMSULOSIN
  7. FINASTERIDE. [Concomitant]
     Active Substance: FINASTERIDE
  8. ALLOPURINOL. [Concomitant]
     Active Substance: ALLOPURINOL
  9. METOPROLOL SUCCINATE. [Concomitant]
     Active Substance: METOPROLOL SUCCINATE
  10. COLCHICINE. [Concomitant]
     Active Substance: COLCHICINE
  11. COENZYME Q10 [Concomitant]
     Active Substance: UBIDECARENONE
  12. PRALUENT [Suspect]
     Active Substance: ALIROCUMAB
     Indication: TYPE IIA HYPERLIPIDAEMIA
     Dosage: 75 MG, QOW
     Route: 058
     Dates: start: 20190316
  13. ARGININE [Concomitant]
     Active Substance: ARGININE
  14. COLESTIPOL [Concomitant]
     Active Substance: COLESTIPOL
  15. NITROGLYCERINE [Concomitant]
     Active Substance: NITROGLYCERIN
  16. VITAMIN D3 [Concomitant]
     Active Substance: CHOLECALCIFEROL
  17. L-CARNITINE [LEVOCARNITINE] [Concomitant]

REACTIONS (4)
  - Gout [Not Recovered/Not Resolved]
  - Device issue [Unknown]
  - Hypertension [Unknown]
  - Product dose omission [Unknown]

NARRATIVE: CASE EVENT DATE: 20190325
